FAERS Safety Report 4353012-0 (Version None)
Quarter: 2004Q2

REPORT INFORMATION
  Report Type: 
  Country: None (occurrence: None)
  Receive Date: 20040429
  Receipt Date: 20040413
  Transmission Date: 20050107
  Serious: Yes (Other)
  Sender: FDA-Public Use
  Company Number: 195881

PATIENT
  Age: 49 Year
  Sex: Female

DRUGS (7)
  1. AVONEX [Suspect]
     Indication: MULTIPLE SCLEROSIS
     Dosage: 30 MCG QW IM
     Route: 030
     Dates: start: 20010131, end: 20031222
  2. AVONEX [Suspect]
     Indication: MULTIPLE SCLEROSIS
     Dosage: 15 MCG QW IM
     Route: 030
     Dates: start: 20040225, end: 20040101
  3. LEVOTHYROXINE [Concomitant]
  4. PAROXETINET [Concomitant]
  5. DETRUSITOL [Concomitant]
  6. ACETAMINOPHEN [Concomitant]
  7. BACLOFEN [Concomitant]

REACTIONS (1)
  - HEPATITIS [None]
